FAERS Safety Report 9016952 (Version 1)
Quarter: 2013Q1

REPORT INFORMATION
  Report Type: Report from Study
  Country: US (occurrence: US)
  Receive Date: 20130117
  Receipt Date: 20130117
  Transmission Date: 20140127
  Serious: Yes (Death, Hospitalization)
  Sender: FDA-Public Use
  Company Number: PHHO2013US001006

PATIENT
  Sex: Male

DRUGS (3)
  1. PREDNISONE [Suspect]
     Indication: RENAL TRANSPLANT
     Dosage: UNK
     Dates: start: 20060416
  2. MYCOPHENOLIC ACID [Suspect]
     Indication: RENAL TRANSPLANT
     Dosage: UNK
     Dates: start: 20060416
  3. CICLOSPORIN [Concomitant]
     Indication: RENAL TRANSPLANT
     Dosage: UNK
     Dates: start: 20060416

REACTIONS (6)
  - Cardiac arrest [Fatal]
  - Mental status changes [None]
  - Dyspnoea [None]
  - Pulseless electrical activity [None]
  - Myocardial infarction [None]
  - Sepsis [None]
